FAERS Safety Report 21086390 (Version 5)
Quarter: 2022Q3

REPORT INFORMATION
  Report Type: Spontaneous
  Country: US (occurrence: US)
  Receive Date: 20220715
  Receipt Date: 20220915
  Transmission Date: 20221026
  Serious: No
  Sender: FDA-Public Use
  Company Number: US-JNJFOC-20220659647

PATIENT
  Age: 80 Year
  Sex: Female
  Weight: 74.002 kg

DRUGS (2)
  1. SPRAVATO [Suspect]
     Active Substance: ESKETAMINE
     Indication: Major depression
     Dates: start: 20220426
  2. SPRAVATO [Suspect]
     Active Substance: ESKETAMINE
     Dates: start: 20220628

REACTIONS (3)
  - Device breakage [Unknown]
  - Device dispensing error [Unknown]
  - Underdose [Unknown]

NARRATIVE: CASE EVENT DATE: 20220628
